FAERS Safety Report 17779235 (Version 1)
Quarter: 2020Q2

REPORT INFORMATION
  Report Type: Spontaneous
  Country: US (occurrence: US)
  Receive Date: 20200513
  Receipt Date: 20200513
  Transmission Date: 20200714
  Serious: Yes (Hospitalization)
  Sender: FDA-Public Use
  Company Number: US-IPSEN BIOPHARMACEUTICALS, INC.-2020-08479

PATIENT
  Sex: Female
  Weight: 86.18 kg

DRUGS (1)
  1. SOMATULINE DEPOT [Suspect]
     Active Substance: LANREOTIDE ACETATE
     Indication: ACROMEGALY
     Dosage: 0.5 EVERY 28 DAYS (SITE: ROTATE BUTTOCKS)
     Route: 058

REACTIONS (2)
  - Coronavirus infection [Not Recovered/Not Resolved]
  - Coronavirus test positive [Not Recovered/Not Resolved]
